FAERS Safety Report 9283596 (Version 1)
Quarter: 2013Q2

REPORT INFORMATION
  Report Type: Spontaneous
  Country: US (occurrence: None)
  Receive Date: 20130508
  Receipt Date: 20130508
  Transmission Date: 20140414
  Serious: Yes (Death)
  Sender: FDA-Public Use
  Company Number: GER/UKI/13/0029406

PATIENT
  Age: 65 None
  Sex: Female
  Weight: 63.5 kg

DRUGS (2)
  1. FLUOXETINE (FLUOXETINE) [Suspect]
     Indication: DEPRESSION
     Dosage: 20 MG, ORAL
     Dates: start: 20120423, end: 20120503
  2. MIRTAZAPIME (MIRTAZAPINE) [Concomitant]

REACTIONS (1)
  - Completed suicide [None]
